FAERS Safety Report 18020143 (Version 1)
Quarter: 2020Q3

REPORT INFORMATION
  Report Type: Spontaneous
  Country: US (occurrence: US)
  Receive Date: 20200714
  Receipt Date: 20200714
  Transmission Date: 20201103
  Serious: Yes (Life-Threatening, Hospitalization)
  Sender: FDA-Public Use
  Company Number: None

PATIENT
  Age: 19 Year
  Sex: Female
  Weight: 74.84 kg

DRUGS (2)
  1. NEXPLANON [Suspect]
     Active Substance: ETONOGESTREL
  2. ELIQUIS [Suspect]
     Active Substance: APIXABAN

REACTIONS (11)
  - Dyspnoea [None]
  - Palpitations [None]
  - Dizziness [None]
  - Urinary tract infection [None]
  - Visual impairment [None]
  - Pulmonary embolism [None]
  - Kidney infection [None]
  - Anxiety [None]
  - Headache [None]
  - Loss of consciousness [None]
  - Menorrhagia [None]

NARRATIVE: CASE EVENT DATE: 20200629
